FAERS Safety Report 7404778-4 (Version None)
Quarter: 2011Q2

REPORT INFORMATION
  Report Type: 
  Country: None (occurrence: None)
  Receive Date: 20110411
  Receipt Date: 20100110
  Transmission Date: 20111010
  Serious: No
  Sender: FDA-Public Use
  Company Number: 2010BI001343

PATIENT
  Age: 32 Year
  Sex: Female

DRUGS (1)
  1. TYSABRI [Suspect]
     Indication: MULTIPLE SCLEROSIS
     Route: 042
     Dates: start: 20091102

REACTIONS (10)
  - INFLUENZA LIKE ILLNESS [None]
  - INFLUENZA [None]
  - FEELING ABNORMAL [None]
  - VOMITING [None]
  - PARAESTHESIA [None]
  - MENTAL IMPAIRMENT [None]
  - AGEUSIA [None]
  - PAIN [None]
  - MALAISE [None]
  - FATIGUE [None]
